APPROVED DRUG PRODUCT: AMMONIUM LACTATE
Active Ingredient: AMMONIUM LACTATE
Strength: EQ 12% BASE
Dosage Form/Route: CREAM;TOPICAL
Application: A075883 | Product #001 | TE Code: AB
Applicant: SUN PHARMA CANADA INC
Approved: Apr 10, 2003 | RLD: No | RS: Yes | Type: RX